FAERS Safety Report 25708912 (Version 1)
Quarter: 2025Q3

REPORT INFORMATION
  Report Type: Spontaneous
  Country: TR (occurrence: TR)
  Receive Date: 20250821
  Receipt Date: 20250821
  Transmission Date: 20251021
  Serious: Yes (Other)
  Sender: MACLEODS
  Company Number: TR-MACLEODS PHARMA-MAC2025054697

PATIENT

DRUGS (1)
  1. CLOBETASOL [Suspect]
     Active Substance: CLOBETASOL
     Indication: Psoriasis
     Dosage: 0.05%
     Route: 065

REACTIONS (3)
  - Adrenal insufficiency [Unknown]
  - Adrenocorticotropic hormone deficiency [Unknown]
  - Cushing^s syndrome [Unknown]
